FAERS Safety Report 6267113-3 (Version None)
Quarter: 2009Q3

REPORT INFORMATION
  Report Type: 
  Country: None (occurrence: None)
  Receive Date: 20090714
  Receipt Date: 20090708
  Transmission Date: 20100115
  Serious: Yes (Life-Threatening, Hospitalization)
  Sender: FDA-Public Use
  Company Number: FR-BRISTOL-MYERS SQUIBB COMPANY-14696330

PATIENT
  Age: 68 Year
  Sex: Female

DRUGS (12)
  1. AMIKLIN INJ [Suspect]
     Route: 042
  2. CLAFORAN [Suspect]
     Route: 042
  3. FLAGYL [Suspect]
  4. CORTANCYL [Concomitant]
  5. CONTRAMAL [Concomitant]
  6. NEXIUM [Concomitant]
  7. CARDENSIEL [Concomitant]
  8. AMLOR [Concomitant]
  9. DEROXAT [Concomitant]
  10. KARDEGIC [Concomitant]
  11. DIFFU-K [Concomitant]
  12. CALCIDIA [Concomitant]

REACTIONS (2)
  - ABDOMINAL SEPSIS [None]
  - CLOSTRIDIUM DIFFICILE COLITIS [None]
